FAERS Safety Report 7961903-4 (Version None)
Quarter: 2011Q4

REPORT INFORMATION
  Report Type: 
  Country: None (occurrence: None)
  Receive Date: 20111207
  Receipt Date: 20111130
  Transmission Date: 20120403
  Serious: No
  Sender: FDA-Public Use
  Company Number: US-PFIZER INC-2011294304

PATIENT
  Sex: Male

DRUGS (2)
  1. VIAGRA [Suspect]
     Dosage: UNK
     Route: 048
  2. VIAGRA [Suspect]
     Dosage: 25-50MG
     Route: 048
     Dates: start: 20090101

REACTIONS (1)
  - DRUG INEFFECTIVE [None]
